FAERS Safety Report 5821408-3 (Version None)
Quarter: 2008Q3

REPORT INFORMATION
  Report Type: 
  Country: None (occurrence: None)
  Receive Date: 20080724
  Receipt Date: 20080717
  Transmission Date: 20090109
  Serious: Yes (Other)
  Sender: FDA-Public Use
  Company Number: JP-BRISTOL-MYERS SQUIBB COMPANY-13761614

PATIENT
  Age: 34 Year
  Sex: Female

DRUGS (1)
  1. ABILIFY [Suspect]
     Indication: SCHIZOPHRENIA
     Dosage: ONGOING
     Route: 048
     Dates: start: 20060822

REACTIONS (2)
  - ABORTION [None]
  - DRUG EXPOSURE DURING PREGNANCY [None]
